FAERS Safety Report 4613566-3 (Version None)
Quarter: 2005Q1

REPORT INFORMATION
  Report Type: 
  Country: None (occurrence: None)
  Receive Date: 20050318
  Receipt Date: 20050318
  Transmission Date: 20050727
  Serious: Yes (Hospitalization)
  Sender: FDA-Public Use
  Company Number: None

PATIENT
  Sex: Male
  Weight: 61.4 kg

DRUGS (2)
  1. MORPHINE SULFATE [Suspect]
     Indication: ABDOMINAL PAIN UPPER
     Dosage: 100MG Q12HOURS
     Dates: start: 20040901, end: 20041201
  2. MORPHINE SULFATE [Suspect]
     Indication: CHEST PAIN
     Dosage: 100MG Q12HOURS
     Dates: start: 20040901, end: 20041201

REACTIONS (3)
  - DEMENTIA [None]
  - MENTAL STATUS CHANGES [None]
  - TREATMENT NONCOMPLIANCE [None]
